FAERS Safety Report 4292499-9 (Version None)
Quarter: 2004Q1

REPORT INFORMATION
  Report Type: 
  Country: None (occurrence: None)
  Receive Date: 20040211
  Receipt Date: 20040211
  Transmission Date: 20041129
  Serious: No
  Sender: FDA-Public Use
  Company Number: None

PATIENT
  Sex: Female
  Weight: 58.9676 kg

DRUGS (4)
  1. BIAXIN XL [Suspect]
     Indication: SINUSITIS
     Dosage: 500 MG 2 DAILY ORAL
     Route: 048
     Dates: start: 20020507, end: 20020517
  2. BIAXIN XL [Suspect]
     Indication: SINUSITIS
     Dosage: 500 MG 2 DAILY ORAL
     Route: 048
     Dates: start: 20040201, end: 20040204
  3. FLONASE [Concomitant]
  4. AFRIN [Concomitant]

REACTIONS (10)
  - ARTHROPATHY [None]
  - CARTILAGE INJURY [None]
  - COUGH [None]
  - JOINT LOCK [None]
  - LARYNGEAL DISORDER [None]
  - LARYNGEAL PAIN [None]
  - MENISCUS LESION [None]
  - ODYNOPHAGIA [None]
  - PAIN [None]
  - SWELLING [None]
